FAERS Safety Report 7174499-4 (Version None)
Quarter: 2010Q4

REPORT INFORMATION
  Report Type: 
  Country: None (occurrence: None)
  Receive Date: 20101219
  Receipt Date: 20100330
  Transmission Date: 20110411
  Serious: No
  Sender: FDA-Public Use
  Company Number: US-AMGEN-KDL402902

PATIENT

DRUGS (9)
  1. ENBREL [Suspect]
     Indication: PRODUCT USED FOR UNKNOWN INDICATION
     Dosage: 50 MG, QWK
     Route: 058
     Dates: end: 20100324
  2. METHOTREXATE [Concomitant]
     Dosage: 2.5 MG, UNK
  3. FENOFIBRATE [Concomitant]
     Dosage: 145 MG, UNK
  4. HYDROCHLOROTHIAZIDE [Concomitant]
     Dosage: 200 MG, UNK
  5. ASPIRIN [Concomitant]
     Dosage: 81 MG, UNK
  6. TOPROL-XL [Concomitant]
     Dosage: 50 MG, UNK
  7. ROSUVASTATIN CALCIUM [Concomitant]
     Dosage: 20 MG, UNK
  8. EZETIMIBE [Concomitant]
     Dosage: 10 MG, UNK
  9. OMEPRAZOLE [Concomitant]
     Dosage: 20 MG, UNK

REACTIONS (4)
  - INJECTION SITE ERYTHEMA [None]
  - INJECTION SITE PRURITUS [None]
  - INJECTION SITE REACTION [None]
  - INJECTION SITE WARMTH [None]
